FAERS Safety Report 23703665 (Version 2)
Quarter: 2024Q2

REPORT INFORMATION
  Report Type: Report from Study
  Country: US (occurrence: US)
  Receive Date: 20240403
  Receipt Date: 20240410
  Transmission Date: 20240716
  Serious: Yes (Death)
  Sender: FDA-Public Use
  Company Number: US-TAIHOP-2023-011242

PATIENT
  Sex: Male
  Weight: 96.89 kg

DRUGS (4)
  1. LONSURF [Suspect]
     Active Substance: TIPIRACIL HYDROCHLORIDE\TRIFLURIDINE
     Indication: Colon cancer metastatic
     Dosage: CURRENT CYCLE UNKNOWN.?FORM STRENGTH: 15MG AND 20MG
     Route: 048
     Dates: start: 20231018
  2. LONSURF [Suspect]
     Active Substance: TIPIRACIL HYDROCHLORIDE\TRIFLURIDINE
     Dosage: CYCLE UNKNOWN?FORM STRENGTH: 15MG AND 20MG
     Route: 048
     Dates: start: 202401
  3. NIVESTYM [Concomitant]
     Active Substance: FILGRASTIM-AAFI
     Indication: Product used for unknown indication
     Dosage: SD PFS
  4. ONDANSETRON [Concomitant]
     Active Substance: ONDANSETRON
     Indication: Product used for unknown indication
     Dosage: UD
     Route: 048

REACTIONS (2)
  - Disease progression [Fatal]
  - Dyspnoea [Unknown]
